FAERS Safety Report 23500826 (Version 1)
Quarter: 2024Q1

REPORT INFORMATION
  Report Type: Spontaneous
  Country: ZA (occurrence: None)
  Receive Date: 20240208
  Receipt Date: 20240208
  Transmission Date: 20240409
  Serious: Yes (Hospitalization)
  Sender: FDA-Public Use
  Company Number: 2024A026916

PATIENT
  Age: 32872 Day
  Sex: Female

DRUGS (3)
  1. BUDESONIDE\FORMOTEROL [Suspect]
     Active Substance: BUDESONIDE\FORMOTEROL
     Indication: Asthma
     Dosage: 160 UG/INHAL; TWO TIMES A DAY
     Route: 055
  2. ALPRAZOLAM [Concomitant]
     Active Substance: ALPRAZOLAM
  3. MACRODANTIN [Concomitant]
     Active Substance: NITROFURANTOIN

REACTIONS (2)
  - Injury [Unknown]
  - Fall [Unknown]
